FAERS Safety Report 19175007 (Version 1)
Quarter: 2021Q2

REPORT INFORMATION
  Report Type: Report from Study
  Country: CA (occurrence: CA)
  Receive Date: 20210423
  Receipt Date: 20210423
  Transmission Date: 20210717
  Serious: Yes (Hospitalization)
  Sender: FDA-Public Use
  Company Number: NVSC2021CA089190

PATIENT
  Sex: Female

DRUGS (2)
  1. KISQALI [Suspect]
     Active Substance: RIBOCICLIB
     Indication: BREAST CANCER METASTATIC
     Dosage: UNK
     Route: 048
     Dates: start: 20210317
  2. DEXAMETHASONE. [Suspect]
     Active Substance: DEXAMETHASONE
     Indication: BRAIN NEOPLASM
     Dosage: UNK
     Route: 065

REACTIONS (8)
  - Oxygen saturation decreased [Unknown]
  - Peripheral swelling [Unknown]
  - Candida infection [Unknown]
  - Lung disorder [Unknown]
  - Heart rate increased [Unknown]
  - Blood glucose abnormal [Unknown]
  - Inflammation [Unknown]
  - Hypotension [Unknown]
